FAERS Safety Report 11705536 (Version 2)
Quarter: 2015Q4

REPORT INFORMATION
  Report Type: Report from Study
  Country: IT (occurrence: IT)
  Receive Date: 20151106
  Receipt Date: 20151113
  Transmission Date: 20160304
  Serious: Yes (Other)
  Sender: FDA-Public Use
  Company Number: IT-ABBVIE-15P-083-1490439-00

PATIENT
  Age: 59 Year
  Sex: Male
  Weight: 78 kg

DRUGS (8)
  1. TRUVADA [Concomitant]
     Active Substance: EMTRICITABINE\TENOFOVIR DISOPROXIL FUMARATE
     Indication: HIV INFECTION
     Dosage: 240/245 MG
     Route: 048
     Dates: start: 20150523
  2. RIBAVIRIN TEVA [Concomitant]
     Active Substance: RIBAVIRIN
     Indication: HEPATITIS C
     Dosage: 2 PLUS 3 TABLETS DAILY
     Route: 048
     Dates: start: 20150528
  3. RIBAVIRIN TEVA [Concomitant]
     Active Substance: RIBAVIRIN
     Route: 048
  4. TRIATEC [Concomitant]
     Active Substance: RAMIPRIL
     Indication: HYPERTENSION
     Route: 048
     Dates: start: 20131104
  5. LAMIVUDINE. [Concomitant]
     Active Substance: LAMIVUDINE
     Indication: HIV INFECTION
     Dates: end: 201504
  6. DASABUVIR [Suspect]
     Active Substance: DASABUVIR
     Indication: HEPATITIS C
     Route: 048
     Dates: start: 20150528
  7. REYATAZ [Concomitant]
     Active Substance: ATAZANAVIR SULFATE
     Indication: HIV INFECTION
     Route: 048
     Dates: start: 20090604, end: 20150611
  8. OMBITASVIR/PARITAPREVIR/RITONAVIR [Suspect]
     Active Substance: OMBITASVIR\PARITAPREVIR\RITONAVIR
     Indication: HEPATITIS C
     Dosage: 25/150/100 MG; 2 TABLETS ONCE DAILY
     Route: 048
     Dates: start: 20150528

REACTIONS (2)
  - Jaundice [Recovered/Resolved]
  - Hyperbilirubinaemia [Recovered/Resolved]

NARRATIVE: CASE EVENT DATE: 20150611
